FAERS Safety Report 18632540 (Version 2)
Quarter: 2021Q1

REPORT INFORMATION
  Report Type: Report from Study
  Country: GB (occurrence: GB)
  Receive Date: 20201218
  Receipt Date: 20210213
  Transmission Date: 20210419
  Serious: Yes (Other)
  Sender: FDA-Public Use
  Company Number: NVSC2020GB320931

PATIENT
  Sex: Female

DRUGS (1)
  1. HYRIMOZ [Suspect]
     Active Substance: ADALIMUMAB-ADAZ
     Indication: PSORIATIC ARTHROPATHY
     Dosage: 40 MG/0.8ML, EOW (FORTNIGHTLY)
     Route: 058

REACTIONS (4)
  - Inflammation [Recovered/Resolved]
  - Impaired healing [Unknown]
  - Vulvovaginal injury [Unknown]
  - Genital blister [Not Recovered/Not Resolved]
